FAERS Safety Report 13244150 (Version 24)
Quarter: 2024Q3

REPORT INFORMATION
  Report Type: Report from Study
  Country: NL (occurrence: NL)
  Receive Date: 20170217
  Receipt Date: 20240919
  Transmission Date: 20241017
  Serious: Yes (Hospitalization)
  Sender: SANOFI AVENTIS
  Company Number: NL-SA-2015SA218820

PATIENT
  Age: 45 Year
  Sex: Female
  Weight: 69 kg

DRUGS (10)
  1. ALEMTUZUMAB [Suspect]
     Active Substance: ALEMTUZUMAB
     Indication: Relapsing multiple sclerosis
     Dosage: 12 MG,QD
     Route: 041
     Dates: start: 20150928, end: 20151002
  2. ALEMTUZUMAB [Suspect]
     Active Substance: ALEMTUZUMAB
     Dosage: 12 MG,QD
     Route: 041
     Dates: start: 20161019, end: 20161021
  3. ALEMTUZUMAB [Suspect]
     Active Substance: ALEMTUZUMAB
     Dosage: 12 MG, QD
     Route: 041
     Dates: start: 20200909, end: 20200911
  4. LEVOTHYROXINE [Concomitant]
     Active Substance: LEVOTHYROXINE\LEVOTHYROXINE SODIUM
     Indication: Graves^ disease
     Dosage: 450 UG,QD
     Route: 048
     Dates: start: 20060601, end: 20160108
  5. FOLIC ACID [Concomitant]
     Active Substance: FOLIC ACID
     Indication: Coeliac disease
     Dosage: 15 MG,QD
     Route: 048
     Dates: start: 20000601
  6. CHOLECALCIFEROL [Concomitant]
     Active Substance: CHOLECALCIFEROL
     Indication: Coeliac disease
     Dosage: UNK UNK,QD
     Route: 048
     Dates: start: 20120925
  7. PANTOPRAZOLE SODIUM [Concomitant]
     Active Substance: PANTOPRAZOLE SODIUM
     Indication: Prophylaxis
     Dosage: 40 MG,QD
     Route: 048
     Dates: start: 20150121
  8. ACYCLOVIR [Concomitant]
     Active Substance: ACYCLOVIR
     Indication: Prophylaxis
     Dosage: 800 MG,QD
     Route: 048
     Dates: start: 20150928, end: 20151001
  9. LEVONORGESTREL [Concomitant]
     Active Substance: LEVONORGESTREL
     Indication: Prophylaxis
     Dosage: 12 UG,QD
     Route: 067
     Dates: start: 2013
  10. VALACYCLOVIR HYDROCHLORIDE [Concomitant]
     Active Substance: VALACYCLOVIR HYDROCHLORIDE
     Indication: Prophylaxis
     Dosage: 500 MG,QD
     Route: 048
     Dates: start: 20151002, end: 20151030

REACTIONS (23)
  - C-reactive protein increased [Recovered/Resolved]
  - Electrocardiogram abnormal [Recovered/Resolved]
  - Hyperglycaemia [Recovered/Resolved]
  - Multiple sclerosis [Not Recovered/Not Resolved]
  - Multiple sclerosis [Recovered/Resolved]
  - Multiple sclerosis [Recovered/Resolved with Sequelae]
  - Multiple sclerosis relapse [Not Recovered/Not Resolved]
  - Multiple sclerosis relapse [Recovered/Resolved]
  - Increased tendency to bruise [Recovered/Resolved]
  - Oral mucosal blistering [Recovered/Resolved]
  - Hypersensitivity [Recovered/Resolved]
  - Hypothyroidism [Recovered/Resolved]
  - Hypotension [Recovered/Resolved]
  - Headache [Recovered/Resolved]
  - Fatigue [Recovered/Resolved]
  - Dizziness [Recovered/Resolved]
  - Increased tendency to bruise [Recovered/Resolved]
  - Contusion [Recovered/Resolved]
  - Fall [Recovered/Resolved]
  - Rotator cuff syndrome [Not Recovered/Not Resolved]
  - Transient ischaemic attack [Recovered/Resolved]
  - Dyspnoea [Recovered/Resolved]
  - Pyrexia [Recovered/Resolved]

NARRATIVE: CASE EVENT DATE: 20150928
